FAERS Safety Report 25331264 (Version 2)
Quarter: 2025Q4

REPORT INFORMATION
  Report Type: Spontaneous
  Country: EU (occurrence: EU)
  Receive Date: 20250519
  Receipt Date: 20251214
  Transmission Date: 20260117
  Serious: Yes (Death, Hospitalization)
  Sender: MYLAN
  Company Number: None

PATIENT
  Age: 83 Year
  Sex: Female

DRUGS (3)
  1. PAROXETINE [Suspect]
     Active Substance: PAROXETINE
     Indication: Depression
     Dosage: 10 MILLIGRAM, QD (1 TABLET DINNER)
     Route: 061
     Dates: start: 20240628, end: 20241030
  2. DONEPEZIL [Suspect]
     Active Substance: DONEPEZIL
     Indication: Dementia Alzheimer^s type
     Dosage: 5 MILLIGRAM, QD (1 TABLET BREAKFAST)
     Route: 061
     Dates: start: 20240510, end: 20241103
  3. TRAZODONE HYDROCHLORIDE [Suspect]
     Active Substance: TRAZODONE HYDROCHLORIDE
     Indication: Dementia Alzheimer^s type
     Dosage: 100 MILLIGRAM, QD (1 TABLET AT DINNER)
     Route: 061
     Dates: start: 20240709, end: 20241108

REACTIONS (3)
  - Hepatic cytolysis [Fatal]
  - Hyperbilirubinaemia [Fatal]
  - Hypocoagulable state [Fatal]

NARRATIVE: CASE EVENT DATE: 20241006
